FAERS Safety Report 13993528 (Version 1)
Quarter: 2017Q3

REPORT INFORMATION
  Report Type: Spontaneous
  Country: IT (occurrence: IT)
  Receive Date: 20170920
  Receipt Date: 20170920
  Transmission Date: 20171128
  Serious: Yes (Other)
  Sender: FDA-Public Use
  Company Number: IT-MYLANLABS-2017M1055643

PATIENT
  Age: 13 Year
  Sex: Female

DRUGS (6)
  1. QUETIAPINE. [Suspect]
     Active Substance: QUETIAPINE
     Indication: NEUROPSYCHIATRIC SYMPTOMS
     Dosage: 300 MG, QD
     Route: 048
  2. RISPERIDONE. [Suspect]
     Active Substance: RISPERIDONE
     Indication: NEUROPSYCHIATRIC SYMPTOMS
     Dosage: 0.5 MG, UNK
  3. RISPERIDONE. [Suspect]
     Active Substance: RISPERIDONE
     Dosage: 2 MG, QD
     Route: 048
  4. ARIPIPRAZOLE. [Suspect]
     Active Substance: ARIPIPRAZOLE
     Indication: NEUROPSYCHIATRIC SYMPTOMS
     Dosage: 7.5 MG, QD
     Route: 048
  5. VALPROIC ACID. [Suspect]
     Active Substance: VALPROIC ACID
     Indication: NEUROPSYCHIATRIC SYMPTOMS
     Dosage: UNK
  6. TOPIRAMATE. [Suspect]
     Active Substance: TOPIRAMATE
     Indication: NEUROPSYCHIATRIC SYMPTOMS
     Dosage: UNK

REACTIONS (4)
  - Drug ineffective [Recovered/Resolved]
  - Oromandibular dystonia [Recovered/Resolved]
  - Tardive dyskinesia [Recovered/Resolved]
  - Dysarthria [Recovered/Resolved]
